FAERS Safety Report 9993691 (Version 1)
Quarter: 2014Q1

REPORT INFORMATION
  Report Type: Report from Study
  Country: NL (occurrence: NL)
  Receive Date: 20140310
  Receipt Date: 20140310
  Transmission Date: 20141002
  Serious: Yes (Death)
  Sender: FDA-Public Use
  Company Number: PHHY2014NL028537

PATIENT
  Sex: 0

DRUGS (4)
  1. ZOMETA [Suspect]
     Indication: BREAST CANCER METASTATIC
     Dosage: 4 MG, ONCE EVERY 8 WEEKS
     Dates: end: 20131202
  2. ZOMETA [Suspect]
     Dosage: 4 MG, ONCE EVERY 8 WEEKS
     Dates: start: 20120831, end: 20131202
  3. ZOMETA [Suspect]
     Dosage: 4 MG, ONCE EVERY 8 WEEKS
     Dates: start: 20131001, end: 20131202
  4. ZOMETA [Suspect]
     Dosage: 4 MG, ONCE EVERY 8 WEEKS
     Dates: start: 20131202, end: 20131202

REACTIONS (1)
  - Death [Fatal]
